FAERS Safety Report 5885134-7 (Version None)
Quarter: 2008Q3

REPORT INFORMATION
  Report Type: 
  Country: None (occurrence: None)
  Receive Date: 20080916
  Receipt Date: 20080909
  Transmission Date: 20090109
  Serious: Yes (Hospitalization)
  Sender: FDA-Public Use
  Company Number: US-MERCK-0809USA00519

PATIENT
  Age: 84 Year
  Sex: Female

DRUGS (26)
  1. JANUVIA [Suspect]
     Indication: TYPE 2 DIABETES MELLITUS
     Route: 048
     Dates: start: 20070717, end: 20071106
  2. BONIVA [Concomitant]
     Route: 065
  3. LIPITOR [Concomitant]
     Route: 065
  4. ATACAND [Concomitant]
     Route: 065
  5. METOPROLOL [Concomitant]
     Route: 065
  6. GLUCOVANCE [Concomitant]
     Route: 065
  7. PRANDIN [Concomitant]
     Route: 065
  8. PROMETRIUM [Concomitant]
     Route: 065
  9. WELLBUTRIN XL [Concomitant]
     Route: 065
  10. TRICOR [Concomitant]
     Route: 065
  11. NEXIUM [Concomitant]
     Route: 065
  12. CHOLECALCIFEROL [Concomitant]
     Route: 065
  13. VITAMIN E [Concomitant]
     Route: 065
  14. UBIDECARENONE [Concomitant]
     Route: 065
  15. ACTOS [Concomitant]
     Route: 065
  16. VICODIN [Concomitant]
     Route: 065
  17. MAGNESIUM OXIDE [Concomitant]
     Route: 065
  18. ZINC (UNSPECIFIED) [Concomitant]
     Route: 065
  19. CHROMIUM (UNSPECIFIED) [Concomitant]
     Route: 065
  20. OMEGA-3 MARINE TRIGLYCERIDES [Concomitant]
     Route: 065
  21. RISPERDAL [Concomitant]
     Route: 065
  22. CYANOCOBALAMIN [Concomitant]
     Route: 051
  23. CALCIUM CITRATE [Concomitant]
     Route: 065
  24. FERROUS SULFATE [Concomitant]
     Route: 065
  25. VITAMINS (UNSPECIFIED) [Concomitant]
     Route: 065
  26. COD LIVER OIL [Concomitant]
     Route: 065

REACTIONS (1)
  - PANCREATITIS ACUTE [None]
